FAERS Safety Report 24676998 (Version 2)
Quarter: 2024Q4

REPORT INFORMATION
  Report Type: Spontaneous
  Country: US (occurrence: US)
  Receive Date: 20241128
  Receipt Date: 20241129
  Transmission Date: 20250115
  Serious: Yes (Hospitalization, Other)
  Sender: STRIDES
  Company Number: US-STRIDES ARCOLAB LIMITED-2024SP015414

PATIENT

DRUGS (7)
  1. HYDROCORTISONE [Suspect]
     Active Substance: HYDROCORTISONE
     Indication: Gestational hyperthyroidism
     Dosage: UNK
     Route: 065
  2. SODIUM CHLORIDE [Suspect]
     Active Substance: SODIUM CHLORIDE
     Indication: Hyperemesis gravidarum
     Dosage: UNK
     Route: 042
  3. DEXTROSE [Suspect]
     Active Substance: DEXTROSE MONOHYDRATE
     Indication: Hyperemesis gravidarum
     Dosage: UNK
     Route: 042
  4. METHIMAZOLE [Suspect]
     Active Substance: METHIMAZOLE
     Indication: Gestational hyperthyroidism
     Dosage: UNK
     Route: 065
  5. PROPRANOLOL [Suspect]
     Active Substance: PROPRANOLOL HYDROCHLORIDE
     Indication: Gestational hyperthyroidism
     Dosage: UNK
     Route: 065
  6. THIAMINE [Suspect]
     Active Substance: THIAMINE
     Indication: Wernicke^s encephalopathy
     Dosage: 500 MILLIGRAM, EVERY 8 HOURS
     Route: 042
  7. THIAMINE [Suspect]
     Active Substance: THIAMINE
     Dosage: 500 MILLIGRAM, QD
     Route: 048

REACTIONS (4)
  - Vitamin B1 deficiency [Recovered/Resolved]
  - Wernicke^s encephalopathy [Recovered/Resolved]
  - Premature delivery [Unknown]
  - Maternal exposure during pregnancy [Unknown]
